FAERS Safety Report 9234807 (Version 1)
Quarter: 2013Q1

REPORT INFORMATION
  Report Type: Spontaneous
  Country: US (occurrence: None)
  Receive Date: 20121031
  Receipt Date: 20121031
  Transmission Date: 20140127
  Serious: No
  Sender: FDA-Public Use
  Company Number: PHEH2012US015070

PATIENT
  Age: 48 Year
  Sex: Female
  Weight: 83 kg

DRUGS (21)
  1. GILENYA (FTY) CAPSULE, 0.5MG [Suspect]
     Dosage: 1 DF, QD ORAL
  2. CELEBREX (CELECOXIB) [Concomitant]
  3. DROPERIDOL [Concomitant]
  4. GENTEAL (HYPROMELLOSE) [Concomitant]
  5. LANTUS INJ SOLOSTAR (INSULIN GLARGINE) [Concomitant]
  6. TRAZODONE (TRAZODONE) [Concomitant]
  7. BUSPIRONE (BUSPIRONE) [Concomitant]
  8. FENTANYL (FENTANYL) [Concomitant]
  9. VALIUM (DIAZEPAM) [Concomitant]
  10. NOVOLOG (INSULIN ASPART) [Concomitant]
  11. FLONASE (FLUTICASONE PROPIONATE) [Concomitant]
  12. LAMICTAL (LAMOTRIGINE) [Concomitant]
  13. VITAMIN C [Concomitant]
  14. ZANAFLEX (TIZANIDINE HYDROCHLORIDE) [Concomitant]
  15. D 1000 (D 1000) [Concomitant]
  16. COCONUT OIL (COCOS NUCIFERA OIL) [Concomitant]
  17. D3 (D3) [Concomitant]
  18. ROZEREM (RAMELTEON) [Concomitant]
  19. ALREX (LOTEPREDNOL ETABONATE) [Concomitant]
  20. TURMERIC (TURMERIC) [Concomitant]
  21. VITAMIN B 12 (CYANOCOBALAMIN) [Concomitant]

REACTIONS (2)
  - Oedema peripheral [None]
  - Pain in extremity [None]
